FAERS Safety Report 10047000 (Version 1)
Quarter: 2014Q1

REPORT INFORMATION
  Report Type: Spontaneous
  Country: US (occurrence: US)
  Receive Date: 20140331
  Receipt Date: 20140331
  Transmission Date: 20141002
  Serious: Yes (Other)
  Sender: FDA-Public Use
  Company Number: US-PFIZER INC-2014085321

PATIENT
  Age: 49 Year
  Sex: Female

DRUGS (12)
  1. MORPHINE SULFATE [Suspect]
     Indication: COMPLEX REGIONAL PAIN SYNDROME
     Dosage: 50 MG/ML, UNK
     Route: 037
  2. MORPHINE SULFATE [Suspect]
     Dosage: 21 MG, UNK
     Route: 037
  3. MORPHINE SULFATE [Suspect]
     Dosage: FIVE BOLUS DOSES (A TOTAL OF 75 MG MORPHINE)
     Route: 037
  4. FENTANYL [Concomitant]
     Indication: COMPLEX REGIONAL PAIN SYNDROME
     Dosage: (50 UG/ML X 20 ML) WAS GIVEN IN 3-5 ML BOLUSES INCREMENTALLY OVER 5 MIN
     Route: 037
  5. CLONIDINE [Concomitant]
     Indication: COMPLEX REGIONAL PAIN SYNDROME
     Dosage: 500 UG/ML, UNK
     Route: 037
  6. CLONIDINE [Concomitant]
     Dosage: 200 UG, DAILY
     Route: 037
  7. CLONIDINE [Concomitant]
     Dosage: 300 UG, FIVE BOLUS DOSES
     Route: 037
  8. CLONIDINE [Concomitant]
     Dosage: 400 UG/ML, UNK
     Route: 037
  9. BUPIVACAINE [Concomitant]
     Indication: COMPLEX REGIONAL PAIN SYNDROME
     Dosage: 4.2 MG, DAILY
     Route: 037
  10. BUPIVACAINE [Concomitant]
     Dosage: 3 MG, UNK
     Route: 037
  11. BUPIVACAINE [Concomitant]
     Dosage: FIVE BOLUS DOSES (A TOTAL OF 15MG)
     Route: 037
  12. BUPIVACAINE [Concomitant]
     Dosage: 10 MG/ML, UNK
     Route: 037

REACTIONS (3)
  - Myoclonus [Recovered/Resolved]
  - Hyperaesthesia [Recovered/Resolved]
  - Chills [Recovered/Resolved]
